FAERS Safety Report 25290941 (Version 1)
Quarter: 2025Q2

REPORT INFORMATION
  Report Type: Spontaneous
  Country: US (occurrence: US)
  Receive Date: 20250510
  Receipt Date: 20250510
  Transmission Date: 20250716
  Serious: No
  Sender: SANOFI AVENTIS
  Company Number: US-SA-2025SA121823

PATIENT
  Age: 33 Year
  Sex: Female

DRUGS (10)
  1. DUPIXENT [Suspect]
     Active Substance: DUPILUMAB
     Indication: Asthma
     Route: 058
     Dates: start: 20221227, end: 2023
  2. AMBIEN [Concomitant]
     Active Substance: ZOLPIDEM TARTRATE
  3. CONCERTA [Concomitant]
     Active Substance: METHYLPHENIDATE HYDROCHLORIDE
  4. TYLENOL [Concomitant]
     Active Substance: ACETAMINOPHEN
  5. ALBUTEROL [Concomitant]
     Active Substance: ALBUTEROL
  6. TOPIRAMATE [Concomitant]
     Active Substance: TOPIRAMATE
  7. TIZANIDINE [Concomitant]
     Active Substance: TIZANIDINE
  8. PANTOPRAZOLE [Concomitant]
     Active Substance: PANTOPRAZOLE
  9. ELIQUIS [Concomitant]
     Active Substance: APIXABAN
  10. ZOFRAN [Concomitant]
     Active Substance: ONDANSETRON HYDROCHLORIDE

REACTIONS (2)
  - Rib fracture [Unknown]
  - Infection [Unknown]
